FAERS Safety Report 8409631-5 (Version None)
Quarter: 2012Q2

REPORT INFORMATION
  Report Type: 
  Country: None (occurrence: None)
  Receive Date: 20120529
  Receipt Date: 20120515
  Transmission Date: 20120825
  Serious: Yes (Other)
  Sender: FDA-Public Use
  Company Number: 1297439

PATIENT
  Age: 25 Year
  Sex: Male

DRUGS (5)
  1. TRETINOIN [Suspect]
     Indication: ACUTE MYELOID LEUKAEMIA
     Dosage: 45 MG/M 2 MILLIGRAM(S)/SQ. METER
  2. METHOTREXATE [Suspect]
     Indication: ACUTE PROMYELOCYTIC LEUKAEMIA
     Dosage: 15 MG/M^2 PER WEEK
  3. IDARUBICIN HCL [Suspect]
     Indication: ACUTE PROMYELOCYTIC LEUKAEMIA
     Dosage: 12 MG/M 2 MILLIGRAM(S)/SQ. METER
  4. MERCAPTOPURINE [Suspect]
     Indication: ACUTE PROMYELOCYTIC LEUKAEMIA
     Dosage: 50 MG/M 2 MILLIGRAM(S)/SQ. METER
  5. MITOXANTRONE HYDROCHLORIDE [Suspect]
     Indication: ACUTE PROMYELOCYTIC LEUKAEMIA
     Dosage: 10 MG/M 2 MILLIGRAM(S)/SQ. METER

REACTIONS (3)
  - STEM CELL TRANSPLANT [None]
  - K-RAS GENE MUTATION [None]
  - ACUTE MYELOID LEUKAEMIA [None]
